FAERS Safety Report 5113697-8 (Version None)
Quarter: 2006Q3

REPORT INFORMATION
  Report Type: 
  Country: None (occurrence: None)
  Receive Date: 20060925
  Receipt Date: 20060920
  Transmission Date: 20061208
  Serious: Yes (Other)
  Sender: FDA-Public Use
  Company Number: 2006UW18414

PATIENT
  Age: 67 Year
  Sex: Female
  Weight: 74.8 kg

DRUGS (4)
  1. TAMOXIFEN CITRATE [Suspect]
     Indication: BREAST CANCER
     Route: 048
  2. ACCUPRIL [Concomitant]
  3. LASIX [Concomitant]
  4. NORVASC [Concomitant]

REACTIONS (4)
  - BLINDNESS [None]
  - BLINDNESS UNILATERAL [None]
  - HYSTERECTOMY [None]
  - THROMBOSIS [None]
